FAERS Safety Report 5654154-X (Version None)
Quarter: 2008Q1

REPORT INFORMATION
  Report Type: 
  Country: None (occurrence: None)
  Receive Date: 20080306
  Receipt Date: 20080212
  Transmission Date: 20080703
  Serious: No
  Sender: FDA-Public Use
  Company Number: US-BOEHRINGER INGELHEIM GMBH, GERMANY-2008-BP-02210BP

PATIENT
  Sex: Female
  Weight: 62 kg

DRUGS (5)
  1. COMBIVENT [Suspect]
  2. XOPENEX HFA [Suspect]
     Indication: CHRONIC OBSTRUCTIVE PULMONARY DISEASE
     Route: 055
     Dates: start: 20071215, end: 20071215
  3. XOPENEX HFA [Suspect]
     Indication: DYSPNOEA
  4. FENTANYL [Suspect]
     Indication: PAIN
     Route: 062
     Dates: start: 20071214
  5. VITAMINS [Concomitant]

REACTIONS (6)
  - DIZZINESS [None]
  - DYSPNOEA [None]
  - MALAISE [None]
  - ORAL PAIN [None]
  - STOMACH DISCOMFORT [None]
  - VOMITING [None]
